APPROVED DRUG PRODUCT: ALEVE
Active Ingredient: NAPROXEN SODIUM
Strength: 220MG
Dosage Form/Route: TABLET;ORAL
Application: N020204 | Product #002
Applicant: BAYER HEALTHCARE LLC
Approved: Jan 11, 1994 | RLD: Yes | RS: Yes | Type: OTC